FAERS Safety Report 5226800-6 (Version None)
Quarter: 2007Q1

REPORT INFORMATION
  Report Type: 
  Country: None (occurrence: None)
  Receive Date: 20070130
  Receipt Date: 20070117
  Transmission Date: 20070707
  Serious: Yes (Death)
  Sender: FDA-Public Use
  Company Number: S07-FRA-00416-01

PATIENT
  Age: 84 Year
  Sex: Male

DRUGS (4)
  1. CITALOPRAM HYDROBROMIDE [Suspect]
     Indication: DYSTHYMIC DISORDER
     Dosage: 20 MG QD PO
     Route: 048
     Dates: start: 20060828, end: 20061120
  2. GALANTAMINE HYDROBROMIDE [Suspect]
     Indication: DEMENTIA ALZHEIMER'S TYPE
     Dosage: 8 MG QD PO
     Route: 048
     Dates: start: 20060828, end: 20061101
  3. GALANTAMINE HYDROBROMIDE [Suspect]
     Indication: DEMENTIA ALZHEIMER'S TYPE
     Dosage: 16 MG QD PO
     Route: 048
     Dates: start: 20061102, end: 20061120
  4. RISPERDAL [Concomitant]

REACTIONS (4)
  - CHEST INJURY [None]
  - COMPLETED SUICIDE [None]
  - FALL [None]
  - HEAD INJURY [None]
